FAERS Safety Report 10612873 (Version 2)
Quarter: 2015Q1

REPORT INFORMATION
  Report Type: Spontaneous
  Country: US (occurrence: US)
  Receive Date: 20141127
  Receipt Date: 20150118
  Transmission Date: 20150720
  Serious: No
  Sender: FDA-Public Use
  Company Number: US-009507513-1411USA011589

PATIENT
  Age: 21 Year
  Sex: Female

DRUGS (1)
  1. NEXPLANON [Suspect]
     Active Substance: ETONOGESTREL
     Indication: CONTRACEPTION
     Dosage: 1 ROD ONCE, IN THE RIGHT ARM, VERY SUPERFICIAL INSTEAD OF SUBDERMAL
     Dates: start: 20141007, end: 20141112

REACTIONS (3)
  - Pain in extremity [Not Recovered/Not Resolved]
  - Discomfort [Unknown]
  - Device deployment issue [Recovered/Resolved]

NARRATIVE: CASE EVENT DATE: 2014
